FAERS Safety Report 19651207 (Version 1)
Quarter: 2021Q3

REPORT INFORMATION
  Report Type: Spontaneous
  Country: PL (occurrence: PL)
  Receive Date: 20210803
  Receipt Date: 20210803
  Transmission Date: 20211014
  Serious: Yes (Hospitalization)
  Sender: FDA-Public Use
  Company Number: PL-TEVA-2021-PL-1938512

PATIENT
  Age: 67 Year
  Sex: Male
  Weight: 60 kg

DRUGS (5)
  1. DORETA [Suspect]
     Active Substance: ACETAMINOPHEN\TRAMADOL HYDROCHLORIDE
     Indication: NEOPLASM MALIGNANT
     Dosage: DOSE: 2 X 1
     Route: 048
     Dates: start: 20180220, end: 20180315
  2. CISPLATIN. [Suspect]
     Active Substance: CISPLATIN
     Indication: NEOPLASM MALIGNANT
     Dosage: 50MG
     Route: 042
     Dates: start: 20180221, end: 20180223
  3. KETONAL [KETOPROFEN] [Suspect]
     Active Substance: KETOPROFEN
     Indication: NEOPLASM MALIGNANT
     Route: 042
     Dates: start: 20180221, end: 20180327
  4. VIVACE [RAMIPRIL] [Suspect]
     Active Substance: RAMIPRIL
     Indication: NEOPLASM MALIGNANT
     Dosage: 5MG
     Route: 048
     Dates: start: 20180221, end: 20180327
  5. NAVELBINE [Suspect]
     Active Substance: VINORELBINE TARTRATE
     Indication: NEOPLASM MALIGNANT
     Dosage: 90MG
     Route: 042
     Dates: start: 20180221

REACTIONS (1)
  - Acute kidney injury [Recovering/Resolving]
